FAERS Safety Report 16915165 (Version 1)
Quarter: 2019Q4

REPORT INFORMATION
  Report Type: Spontaneous
  Country: US (occurrence: US)
  Receive Date: 20191014
  Receipt Date: 20191014
  Transmission Date: 20200122
  Serious: Yes (Hospitalization, Other)
  Sender: FDA-Public Use
  Company Number: US-OTSUKA-2019_004319

PATIENT
  Sex: Male

DRUGS (2)
  1. ABILIFY [Suspect]
     Active Substance: ARIPIPRAZOLE
     Indication: ANXIETY
  2. ABILIFY [Suspect]
     Active Substance: ARIPIPRAZOLE
     Indication: DEPRESSION
     Dosage: 5 MG, QD
     Route: 065
     Dates: start: 201301

REACTIONS (17)
  - Facet joint syndrome [Unknown]
  - Haemoglobin decreased [Unknown]
  - Gambling disorder [Unknown]
  - Tendon disorder [Unknown]
  - Anxiety [Unknown]
  - Homeless [Unknown]
  - Blood magnesium increased [Unknown]
  - Economic problem [Unknown]
  - Blood ethanol increased [Unknown]
  - Rotator cuff syndrome [Unknown]
  - Drug dependence [Unknown]
  - Stress [Unknown]
  - Stress cardiomyopathy [Unknown]
  - Blood creatinine increased [Recovering/Resolving]
  - Product use in unapproved indication [Unknown]
  - Product dose omission [Unknown]
  - Aspartate aminotransferase increased [Unknown]

NARRATIVE: CASE EVENT DATE: 201301
